FAERS Safety Report 8427487-1 (Version None)
Quarter: 2012Q2

REPORT INFORMATION
  Report Type: 
  Country: None (occurrence: None)
  Receive Date: 20120611
  Receipt Date: 20120604
  Transmission Date: 20120825
  Serious: Yes (Other)
  Sender: FDA-Public Use
  Company Number: KR-ELI_LILLY_AND_COMPANY-KR201204005079

PATIENT
  Age: 46 Year
  Sex: Male

DRUGS (5)
  1. EFFIENT [Suspect]
     Dosage: 10 MG, QD
     Route: 048
  2. ATORVASTATIN CALCIUM [Concomitant]
     Dosage: 40 MG, UNK
  3. METOPROLOL [Concomitant]
  4. EFFIENT [Suspect]
     Indication: ACUTE MYOCARDIAL INFARCTION
     Dosage: 60 MG LOADING DOSE
     Dates: start: 20120328
  5. ASPIRIN [Concomitant]

REACTIONS (2)
  - ASPARTATE AMINOTRANSFERASE INCREASED [None]
  - ALANINE AMINOTRANSFERASE INCREASED [None]
